FAERS Safety Report 17000607 (Version 3)
Quarter: 2021Q4

REPORT INFORMATION
  Report Type: Spontaneous
  Country: US (occurrence: US)
  Receive Date: 20191106
  Receipt Date: 20211025
  Transmission Date: 20220304
  Serious: Yes (Other)
  Sender: FDA-Public Use
  Company Number: US-AMERICAN REGENT INC-2019002367

PATIENT
  Age: 17 Year
  Sex: Female

DRUGS (4)
  1. VENOFER [Suspect]
     Active Substance: IRON SUCROSE
     Indication: Product used for unknown indication
     Dosage: 200 MILLIGRAM, SINGLE
     Route: 042
     Dates: start: 20190801, end: 20190801
  2. VENOFER [Suspect]
     Active Substance: IRON SUCROSE
     Dosage: 200 MILLIGRAM, SINGLE
     Route: 042
     Dates: start: 20190814, end: 20190814
  3. VENOFER [Suspect]
     Active Substance: IRON SUCROSE
     Dosage: 300 MILLIGRAM, SINGLE
     Route: 042
     Dates: start: 20190918, end: 20190918
  4. VENOFER [Suspect]
     Active Substance: IRON SUCROSE
     Dosage: 300 MILLIGRAM, SINGLE
     Route: 042
     Dates: start: 20191011, end: 20191011

REACTIONS (29)
  - Pulse abnormal [Recovered/Resolved]
  - Thrombosis [Recovered/Resolved]
  - Thrombophlebitis [Recovered/Resolved]
  - Serum ferritin increased [Unknown]
  - Blood disorder [Not Recovered/Not Resolved]
  - Serum ferritin decreased [Recovered/Resolved]
  - Skin discolouration [Recovered/Resolved]
  - Infusion site extravasation [Recovered/Resolved]
  - Infusion site mass [Not Recovered/Not Resolved]
  - Infusion site pain [Not Recovered/Not Resolved]
  - Peripheral swelling [Not Recovered/Not Resolved]
  - Hypotension [Not Recovered/Not Resolved]
  - Gait disturbance [Recovered/Resolved]
  - Pain [Recovered/Resolved]
  - Peripheral coldness [Recovered/Resolved]
  - Muscular weakness [Recovered/Resolved]
  - White blood cell count increased [Unknown]
  - Skin warm [Recovered/Resolved]
  - Eye pain [Recovered/Resolved]
  - Ocular hyperaemia [Recovered/Resolved]
  - Oropharyngeal pain [Recovered/Resolved]
  - Pharyngeal swelling [Recovered/Resolved]
  - Laboratory test abnormal [Unknown]
  - Paraesthesia [Recovered/Resolved]
  - Muscle spasms [Recovered/Resolved]
  - Pain in extremity [Recovered/Resolved]
  - Arthralgia [Not Recovered/Not Resolved]
  - Chest pain [Recovered/Resolved]
  - Pyrexia [Recovered/Resolved]

NARRATIVE: CASE EVENT DATE: 20190101
